FAERS Safety Report 13284243 (Version 1)
Quarter: 2017Q1

REPORT INFORMATION
  Report Type: Spontaneous
  Country: DE (occurrence: DE)
  Receive Date: 20170301
  Receipt Date: 20170301
  Transmission Date: 20170428
  Serious: Yes (Other)
  Sender: FDA-Public Use
  Company Number: DE-BEH-2010021961

PATIENT
  Age: 33 Year
  Sex: Female

DRUGS (3)
  1. RHOPHYLAC [Suspect]
     Active Substance: HUMAN RHO(D) IMMUNE GLOBULIN
     Indication: PROPHYLAXIS AGAINST RH ISOIMMUNISATION
     Dosage: 300 MICROGRAM
     Route: 030
     Dates: start: 20090209, end: 20090209
  2. RHOPHYLAC [Suspect]
     Active Substance: HUMAN RHO(D) IMMUNE GLOBULIN
     Dosage: 300 MICROGRAM
     Route: 030
     Dates: start: 20090423, end: 20090423
  3. BLOOD TRANSFUSION [Concomitant]
     Active Substance: WHOLE BLOOD
     Indication: POSTPARTUM HAEMORRHAGE
     Route: 042
     Dates: start: 20090422, end: 20090422

REACTIONS (2)
  - Rhesus incompatibility [Unknown]
  - Rhesus antibodies positive [Unknown]

NARRATIVE: CASE EVENT DATE: 200911
